FAERS Safety Report 5680541-X (Version None)
Quarter: 2008Q1

REPORT INFORMATION
  Report Type: 
  Country: None (occurrence: None)
  Receive Date: 20080326
  Receipt Date: 20080318
  Transmission Date: 20080703
  Serious: Yes (Death, Life-Threatening, Hospitalization)
  Sender: FDA-Public Use
  Company Number: GH-MERCK-0803USA03226

PATIENT
  Age: 18 Year
  Sex: Male

DRUGS (2)
  1. STROMECTOL [Suspect]
     Route: 065
     Dates: start: 20070501
  2. ALBENDAZOLE [Suspect]
     Route: 065
     Dates: start: 20070501

REACTIONS (11)
  - ADVERSE DRUG REACTION [None]
  - ANOREXIA [None]
  - BLISTER [None]
  - HAEMATEMESIS [None]
  - MALAISE [None]
  - OCULAR HYPERAEMIA [None]
  - ORAL PAIN [None]
  - RASH [None]
  - SEPSIS [None]
  - SHOCK [None]
  - TOXIC EPIDERMAL NECROLYSIS [None]
